FAERS Safety Report 21592160 (Version 1)
Quarter: 2022Q4

REPORT INFORMATION
  Report Type: Spontaneous
  Country: ID (occurrence: None)
  Receive Date: 20221114
  Receipt Date: 20221114
  Transmission Date: 20230113
  Serious: Yes (Death, Other)
  Sender: FDA-Public Use
  Company Number: 2022A374696

PATIENT
  Age: 55 Year
  Sex: Female

DRUGS (2)
  1. OMEPRAZOLE [Suspect]
     Active Substance: OMEPRAZOLE
     Route: 065
  2. SUCRALFATE [Suspect]
     Active Substance: SUCRALFATE
     Route: 065

REACTIONS (18)
  - Back pain [Fatal]
  - Abdominal pain [Fatal]
  - Decreased appetite [Fatal]
  - Fatigue [Fatal]
  - Abnormal loss of weight [Fatal]
  - Pallor [Fatal]
  - Illness [Fatal]
  - Normocytic anaemia [Fatal]
  - Red blood cell sedimentation rate increased [Fatal]
  - Rouleaux formation [Fatal]
  - Immunoglobulins increased [Fatal]
  - Blood calcium increased [Fatal]
  - Osteolysis [Fatal]
  - Plasmacytosis [Fatal]
  - Blood albumin decreased [Fatal]
  - Monoclonal gammopathy [Fatal]
  - Histiocytosis [Fatal]
  - Myelosuppression [Fatal]
